FAERS Safety Report 22359659 (Version 3)
Quarter: 2023Q4

REPORT INFORMATION
  Report Type: Report from Study
  Country: CA (occurrence: CA)
  Receive Date: 20230524
  Receipt Date: 20231010
  Transmission Date: 20240110
  Serious: Yes (Hospitalization)
  Sender: FDA-Public Use
  Company Number: CA-TAKEDA-2023TUS051081

PATIENT
  Age: 84 Year
  Sex: Male

DRUGS (18)
  1. VEDOLIZUMAB [Suspect]
     Active Substance: VEDOLIZUMAB
     Indication: Crohn^s disease
     Dosage: 300 MILLIGRAM
     Route: 042
     Dates: start: 20201013
  2. VEDOLIZUMAB [Suspect]
     Active Substance: VEDOLIZUMAB
     Dosage: 300 MILLIGRAM, Q4WEEKS
     Route: 042
     Dates: start: 20210222
  3. VEDOLIZUMAB [Suspect]
     Active Substance: VEDOLIZUMAB
     Indication: Crohn^s disease
     Dosage: 108 MILLIGRAM
     Route: 058
     Dates: start: 20230227
  4. ALLOPURINOL [Concomitant]
     Active Substance: ALLOPURINOL
     Dosage: 100 MILLIGRAM, QD
     Route: 048
  5. AMLODIPINE [Concomitant]
     Active Substance: AMLODIPINE BESYLATE
     Dosage: 5 MILLIGRAM, QD
     Route: 048
  6. ATORVASTATIN [Concomitant]
     Active Substance: ATORVASTATIN
     Dosage: 20 MILLIGRAM, QD
     Route: 048
  7. VITAMIN B12 [Concomitant]
     Active Substance: CYANOCOBALAMIN
     Dosage: UNK UNK, Q3WEEKS
  8. BISOPROLOL [Concomitant]
     Active Substance: BISOPROLOL\BISOPROLOL FUMARATE
     Dosage: 5 MILLIGRAM, BID
     Route: 048
  9. ELIQUIS [Concomitant]
     Active Substance: APIXABAN
     Dosage: 2.5 MILLIGRAM, BID
     Route: 048
  10. EPLERENONE [Concomitant]
     Active Substance: EPLERENONE
     Dosage: 50 MILLIGRAM, QD
     Route: 048
  11. FUROSEMIDE [Concomitant]
     Active Substance: FUROSEMIDE
     Dosage: 60 MILLIGRAM, QD
     Route: 048
  12. METOCLOPRAMIDE [Concomitant]
     Active Substance: METOCLOPRAMIDE
     Dosage: 5 MILLIGRAM, TID
     Route: 048
  13. MIRTAZAPINE [Concomitant]
     Active Substance: MIRTAZAPINE
     Dosage: 30 MILLIGRAM, QD
     Route: 048
  14. POTASSIUM CHLORIDE [Concomitant]
     Active Substance: POTASSIUM CHLORIDE
     Dosage: 600 MILLIGRAM, TID
     Route: 048
  15. ZOPICLONE [Concomitant]
     Active Substance: ZOPICLONE
     Dosage: 3.75 MILLIGRAM, QD
     Route: 048
  16. GABAPENTIN [Concomitant]
     Active Substance: GABAPENTIN
     Dosage: 100 MILLIGRAM
     Route: 048
  17. TYLENOL EXTRA STRENGTH [Concomitant]
     Active Substance: ACETAMINOPHEN
     Dosage: 1000 MILLIGRAM, TID
     Route: 048
  18. MILK OF MAGNESIA [Concomitant]
     Active Substance: MAGNESIUM HYDROXIDE
     Dosage: UNK
     Route: 048

REACTIONS (6)
  - Bacterial infection [Unknown]
  - Herpes zoster [Unknown]
  - Off label use [Unknown]
  - Dizziness [Unknown]
  - Vomiting [Unknown]
  - Constipation [Unknown]

NARRATIVE: CASE EVENT DATE: 20210222
